FAERS Safety Report 10461036 (Version 1)
Quarter: 2014Q3

REPORT INFORMATION
  Report Type: Spontaneous
  Country: US (occurrence: None)
  Receive Date: 20140917
  Receipt Date: 20140917
  Transmission Date: 20150326
  Serious: Yes (Other)
  Sender: FDA-Public Use
  Company Number: None

PATIENT
  Age: 36 Year
  Sex: Male
  Weight: 95.26 kg

DRUGS (1)
  1. CONCERTA GENERIC 54MG MALLINKRODT [Suspect]
     Active Substance: METHYLPHENIDATE
     Indication: ATTENTION DEFICIT/HYPERACTIVITY DISORDER
     Dosage: 2 ONCE DAILY, TAKBEN BY MOUTH
     Route: 048
     Dates: start: 20040901, end: 20140916

REACTIONS (5)
  - Tremor [None]
  - Therapeutic response decreased [None]
  - Nausea [None]
  - Product substitution issue [None]
  - Hyperhidrosis [None]

NARRATIVE: CASE EVENT DATE: 20140831
